FAERS Safety Report 4969631-4 (Version None)
Quarter: 2006Q1

REPORT INFORMATION
  Report Type: 
  Country: None (occurrence: None)
  Receive Date: 20060201
  Receipt Date: 20051227
  Transmission Date: 20060701
  Serious: No
  Sender: FDA-Public Use
  Company Number: 2005PV006154

PATIENT
  Age: 59 Year
  Sex: Female
  Weight: 117.9352 kg

DRUGS (7)
  1. BYETTA [Suspect]
     Indication: DIABETES MELLITUS NON-INSULIN-DEPENDENT
     Dosage: SEE IMAGE
     Route: 058
     Dates: start: 20051001, end: 20051201
  2. BYETTA [Suspect]
     Indication: DIABETES MELLITUS NON-INSULIN-DEPENDENT
     Dosage: SEE IMAGE
     Route: 058
     Dates: start: 20051201
  3. PRANDIN [Concomitant]
  4. METFORMIN [Concomitant]
  5. AVANDIA [Concomitant]
  6. NEURONTIN [Concomitant]
  7. METHOCARBAMOL [Concomitant]

REACTIONS (8)
  - BACK PAIN [None]
  - BOWEL SOUNDS ABNORMAL [None]
  - DIARRHOEA [None]
  - FLATULENCE [None]
  - FLUID RETENTION [None]
  - INSOMNIA [None]
  - NAUSEA [None]
  - RETCHING [None]
